FAERS Safety Report 22370118 (Version 2)
Quarter: 2023Q2

REPORT INFORMATION
  Report Type: Spontaneous
  Country: ES (occurrence: ES)
  Receive Date: 20230526
  Receipt Date: 20230603
  Transmission Date: 20230722
  Serious: Yes (Other)
  Sender: FDA-Public Use
  Company Number: ES-CELLTRION INC.-2023ES010920

PATIENT

DRUGS (7)
  1. RITUXIMAB [Suspect]
     Active Substance: RITUXIMAB
     Indication: Granulomatosis with polyangiitis
     Dosage: 5 WEEKS FROM THE LAST RITUXIMAB DOSE TO THE FIRST VACCINE
  2. RITUXIMAB [Suspect]
     Active Substance: RITUXIMAB
     Dosage: 12 WEEKS FROM THE LAST RITUXIMAB DOSE TO THE THIRD VACCINE
  3. COVID-19 VACCINE NOS [Interacting]
     Active Substance: COVID-19 VACCINE NOS
     Indication: COVID-19 prophylaxis
  4. TOZINAMERAN [Interacting]
     Active Substance: TOZINAMERAN
     Indication: COVID-19 prophylaxis
  5. PREDNISONE [Suspect]
     Active Substance: PREDNISONE
     Dosage: 7.5 MG, PER DAY
  6. ASTRAZENECA COVID-19 VACCINE [Suspect]
     Active Substance: AZD-1222
     Indication: Immunisation
     Dosage: FIRST DOSE
  7. ASTRAZENECA COVID-19 VACCINE [Suspect]
     Active Substance: AZD-1222
     Dosage: SECOND DOSE

REACTIONS (3)
  - Humoral immune defect [Unknown]
  - COVID-19 [Unknown]
  - Vaccine interaction [Unknown]
